FAERS Safety Report 24914137 (Version 2)
Quarter: 2025Q2

REPORT INFORMATION
  Report Type: Report from Study
  Country: CA (occurrence: CA)
  Receive Date: 20250202
  Receipt Date: 20250616
  Transmission Date: 20250717
  Serious: Yes (Other)
  Sender: TAKEDA
  Company Number: CA-TAKEDA-2025TUS009272

PATIENT
  Sex: Male

DRUGS (5)
  1. VEDOLIZUMAB [Suspect]
     Active Substance: VEDOLIZUMAB
     Indication: Colitis ulcerative
  2. VEDOLIZUMAB [Suspect]
     Active Substance: VEDOLIZUMAB
     Indication: Colitis ulcerative
     Dosage: 108 MILLIGRAM, Q2WEEKS
     Dates: start: 20250314
  3. Cortiment [Concomitant]
     Dosage: UNK UNK, QD
     Dates: start: 20220901
  4. BUDESONIDE [Concomitant]
     Active Substance: BUDESONIDE
  5. MESALAMINE [Concomitant]
     Active Substance: MESALAMINE

REACTIONS (2)
  - Crohn^s disease [Not Recovered/Not Resolved]
  - Fatigue [Unknown]
